FAERS Safety Report 25886736 (Version 1)
Quarter: 2025Q4

REPORT INFORMATION
  Report Type: Spontaneous
  Country: US (occurrence: None)
  Receive Date: 20251006
  Receipt Date: 20251006
  Transmission Date: 20260117
  Serious: Yes (Hospitalization)
  Sender: FDA-CTU
  Company Number: None

PATIENT
  Sex: Female
  Weight: 49.5 kg

DRUGS (2)
  1. WINREVAIR [Suspect]
     Active Substance: SOTATERCEPT-CSRK
     Indication: Pulmonary arterial hypertension
     Dosage: OTHER FREQUENCY : EVERY 3 WEEKS;?
     Route: 058
     Dates: start: 20250329
  2. REMODULIN [Suspect]
     Active Substance: TREPROSTINIL

REACTIONS (5)
  - Fall [None]
  - Paranasal sinus hypersecretion [None]
  - Multiple allergies [None]
  - Abdominal pain upper [None]
  - Nausea [None]
